FAERS Safety Report 24662124 (Version 2)
Quarter: 2024Q4

REPORT INFORMATION
  Report Type: Spontaneous
  Country: IN (occurrence: None)
  Receive Date: 20241125
  Receipt Date: 20241204
  Transmission Date: 20250115
  Serious: Yes (Other)
  Sender: UNICHEM
  Company Number: IN-Unichem Pharmaceuticals (USA) Inc-UCM202411-001549

PATIENT
  Age: 81 Year
  Sex: Male

DRUGS (8)
  1. MEMANTINE [Suspect]
     Active Substance: MEMANTINE
     Indication: Dementia
     Route: 048
     Dates: start: 202307, end: 202407
  2. DONEPEZIL [Suspect]
     Active Substance: DONEPEZIL
     Indication: Dementia
     Route: 048
     Dates: start: 202303, end: 202407
  3. OLANZAPINE [Concomitant]
     Active Substance: OLANZAPINE
     Indication: Delusion
     Dates: start: 202005
  4. OLANZAPINE [Concomitant]
     Active Substance: OLANZAPINE
     Indication: Hallucination
     Dates: start: 202007
  5. OLANZAPINE [Concomitant]
     Active Substance: OLANZAPINE
     Dates: start: 202010
  6. OLANZAPINE [Concomitant]
     Active Substance: OLANZAPINE
     Dates: start: 202110
  7. OLANZAPINE [Concomitant]
     Active Substance: OLANZAPINE
     Dates: start: 202210
  8. OLANZAPINE [Concomitant]
     Active Substance: OLANZAPINE
     Dates: start: 202301, end: 202302

REACTIONS (1)
  - Atrioventricular block second degree [Recovered/Resolved]
